FAERS Safety Report 11626536 (Version 8)
Quarter: 2016Q2

REPORT INFORMATION
  Report Type: Report from Study
  Country: BR (occurrence: BR)
  Receive Date: 20151013
  Receipt Date: 20160610
  Transmission Date: 20160815
  Serious: Yes (Hospitalization, Other)
  Sender: FDA-Public Use
  Company Number: PHHY2015BR122562

PATIENT
  Sex: Female
  Weight: 48 kg

DRUGS (5)
  1. EXJADE [Suspect]
     Active Substance: DEFERASIROX
     Indication: MYELODYSPLASTIC SYNDROME
     Dosage: 20 MG/KG, QD (2 DF 1000 MG)
     Route: 048
     Dates: start: 201510
  2. EXJADE [Suspect]
     Active Substance: DEFERASIROX
     Indication: BONE MARROW FAILURE
     Dosage: 20 MG/KG, QD (2 DF 1000 MG)
     Route: 048
  3. EXJADE [Suspect]
     Active Substance: DEFERASIROX
     Indication: APLASTIC ANAEMIA
     Dosage: 20 MG/KG, QD (2 DF 1000 MG)
     Route: 048
     Dates: start: 201511
  4. EXJADE [Suspect]
     Active Substance: DEFERASIROX
     Dosage: 20 MG/KG, QD (2 DF: 1000 MG)
     Route: 048
     Dates: end: 201605
  5. EXJADE [Suspect]
     Active Substance: DEFERASIROX
     Dosage: 10 MG/KG, QD (1 DF: 500 MG)
     Route: 048

REACTIONS (33)
  - Depression [Unknown]
  - Pollakiuria [Recovering/Resolving]
  - Platelet count decreased [Recovering/Resolving]
  - Weight decreased [Recovering/Resolving]
  - Rash generalised [Unknown]
  - Speech disorder [Recovering/Resolving]
  - Urinary tract infection [Unknown]
  - Sneezing [Unknown]
  - Serum ferritin increased [Recovering/Resolving]
  - Feeding disorder [Recovering/Resolving]
  - Decreased appetite [Not Recovered/Not Resolved]
  - Skin discolouration [Not Recovered/Not Resolved]
  - Dementia Alzheimer^s type [Unknown]
  - Anxiety [Unknown]
  - Skin discolouration [Recovered/Resolved]
  - Nasopharyngitis [Unknown]
  - Oedema peripheral [Recovered/Resolved]
  - Concomitant disease aggravated [Unknown]
  - Faeces discoloured [Unknown]
  - Asthenia [Recovered/Resolved]
  - Vomiting [Recovered/Resolved]
  - Hypersensitivity [Unknown]
  - Diet refusal [Not Recovered/Not Resolved]
  - Dry skin [Unknown]
  - Blood glucose decreased [Recovered/Resolved]
  - Nausea [Unknown]
  - Dengue fever [Unknown]
  - Pruritus [Not Recovered/Not Resolved]
  - Malaise [Recovered/Resolved]
  - Renal disorder [Unknown]
  - Skin mass [Unknown]
  - Depressed mood [Unknown]
  - Diarrhoea [Recovered/Resolved]

NARRATIVE: CASE EVENT DATE: 2015
